FAERS Safety Report 16255604 (Version 1)
Quarter: 2019Q2

REPORT INFORMATION
  Report Type: Spontaneous
  Country: US (occurrence: US)
  Receive Date: 20190430
  Receipt Date: 20190430
  Transmission Date: 20190711
  Serious: Yes (Other)
  Sender: FDA-Public Use
  Company Number: US-DRREDDYS-USA/USA/19/0109897

PATIENT
  Age: 16 Year
  Sex: Female

DRUGS (2)
  1. CLOFARABINE INJECTION [Suspect]
     Active Substance: CLOFARABINE
     Indication: ACUTE LEUKAEMIA
     Route: 065
  2. CYTARABINE. [Suspect]
     Active Substance: CYTARABINE
     Indication: ACUTE LEUKAEMIA
     Route: 065

REACTIONS (2)
  - Muscular weakness [Recovered/Resolved]
  - Toxic leukoencephalopathy [Recovered/Resolved]
